FAERS Safety Report 12918668 (Version 3)
Quarter: 2017Q3

REPORT INFORMATION
  Report Type: Spontaneous
  Country: US (occurrence: US)
  Receive Date: 20161107
  Receipt Date: 20170803
  Transmission Date: 20171127
  Serious: Yes (Death, Life-Threatening, Hospitalization, Other)
  Sender: FDA-Public Use
  Company Number: US-AUROBINDO-AUR-APL-2016-13598

PATIENT
  Age: 51 Year
  Sex: Male

DRUGS (10)
  1. VANCOMYCIN [Concomitant]
     Active Substance: VANCOMYCIN
     Indication: PRODUCT USED FOR UNKNOWN INDICATION
     Route: 042
  2. ACICLOVIR [Suspect]
     Active Substance: ACYCLOVIR
     Indication: GENITAL HERPES SIMPLEX
  3. VALACICLOVIR 500MG [Suspect]
     Active Substance: VALACYCLOVIR HYDROCHLORIDE
     Indication: PROPHYLAXIS
     Dosage: 500 MG, TWO TIMES A DAY
     Route: 048
  4. VALACICLOVIR 500MG [Suspect]
     Active Substance: VALACYCLOVIR HYDROCHLORIDE
     Dosage: 1 G, TWO TIMES A DAY
     Route: 048
  5. MEROPENEM. [Concomitant]
     Active Substance: MEROPENEM
     Indication: LIVER ABSCESS
  6. ACICLOVIR [Suspect]
     Active Substance: ACYCLOVIR
     Indication: HERPES SIMPLEX
     Dosage: 10 MG/KG, UNK
     Route: 042
  7. AMPHOTERICIN [Concomitant]
     Active Substance: AMPHOTERICIN B
     Indication: PRODUCT USED FOR UNKNOWN INDICATION
     Route: 065
  8. VANCOMYCIN [Concomitant]
     Active Substance: VANCOMYCIN
     Indication: LIVER ABSCESS
     Route: 042
  9. MEROPENEM. [Concomitant]
     Active Substance: MEROPENEM
     Indication: LIVER ABSCESS
     Route: 042
  10. AMPHOTERICIN [Concomitant]
     Active Substance: AMPHOTERICIN B
     Route: 042

REACTIONS (9)
  - Multiple organ dysfunction syndrome [Fatal]
  - Herpes simplex [Fatal]
  - Drug resistance [Fatal]
  - Gastrointestinal haemorrhage [Unknown]
  - Acute hepatic failure [Fatal]
  - Renal impairment [Fatal]
  - Mental status changes [Unknown]
  - Encephalopathy [Fatal]
  - Coagulopathy [Unknown]
